FAERS Safety Report 24158563 (Version 1)
Quarter: 2024Q3

REPORT INFORMATION
  Report Type: Spontaneous
  Country: US (occurrence: US)
  Receive Date: 20240731
  Receipt Date: 20240731
  Transmission Date: 20241017
  Serious: No
  Sender: AMGEN
  Company Number: US-AMGEN-USASP2024149562

PATIENT
  Age: 49 Year
  Sex: Female

DRUGS (3)
  1. TEPEZZA [Suspect]
     Active Substance: TEPROTUMUMAB-TRBW
     Indication: Toxic goitre
     Dosage: 7700 MILLIGRAM, Q3WK (WEEK 0 PIV X1 DOSE), WEEK 0
     Route: 042
     Dates: start: 20240327
  2. TEPEZZA [Suspect]
     Active Substance: TEPROTUMUMAB-TRBW
     Dosage: 1540 MILLIGRAM, Q3WK (WEEK 3 PIVX 7 DOSES), WEEK 3
     Route: 042
     Dates: start: 202404
  3. TEPEZZA [Suspect]
     Active Substance: TEPROTUMUMAB-TRBW
     Dosage: 1540 MILLIGRAM, Q3WK (WEEK 3 PIVX 7 DOSES),  DOSE #4
     Route: 042
     Dates: start: 20240605

REACTIONS (2)
  - Blood glucose abnormal [Recovering/Resolving]
  - Off label use [Unknown]

NARRATIVE: CASE EVENT DATE: 20240327
